FAERS Safety Report 21614853 (Version 6)
Quarter: 2023Q4

REPORT INFORMATION
  Report Type: Spontaneous
  Country: US (occurrence: US)
  Receive Date: 20221118
  Receipt Date: 20231106
  Transmission Date: 20240109
  Serious: No
  Sender: FDA-Public Use
  Company Number: US-PFIZER INC-PV202200069736

PATIENT
  Age: 78 Year
  Sex: Female

DRUGS (1)
  1. XELJANZ [Suspect]
     Active Substance: TOFACITINIB CITRATE
     Indication: Rheumatoid arthritis
     Dosage: 5 MG, 1X/DAY
     Route: 048
     Dates: start: 20220915, end: 20230726

REACTIONS (8)
  - Therapeutic product effect incomplete [Unknown]
  - Condition aggravated [Unknown]
  - Pain in extremity [Unknown]
  - Joint swelling [Unknown]
  - Arthralgia [Unknown]
  - Finger deformity [Not Recovered/Not Resolved]
  - Wrist deformity [Unknown]
  - Off label use [Unknown]

NARRATIVE: CASE EVENT DATE: 20230509
